FAERS Safety Report 22536811 (Version 1)
Quarter: 2023Q2

REPORT INFORMATION
  Report Type: Spontaneous
  Country: CN (occurrence: CN)
  Receive Date: 20230608
  Receipt Date: 20230608
  Transmission Date: 20230722
  Serious: Yes (Other)
  Sender: FDA-Public Use
  Company Number: CN-FreseniusKabi-FK202307880

PATIENT
  Age: 48 Year
  Sex: Female
  Weight: 50 kg

DRUGS (3)
  1. INTRALIPID [Suspect]
     Active Substance: EGG PHOSPHOLIPIDS\GLYCERIN\SOYBEAN OIL
     Indication: Nutritional supplementation
     Route: 041
     Dates: start: 20230517, end: 20230519
  2. POTASSIUM CHLORIDE [Concomitant]
     Active Substance: POTASSIUM CHLORIDE
     Indication: Fluid replacement
     Route: 041
     Dates: start: 20230517, end: 20230519
  3. POTASSIUM CHLORIDE [Concomitant]
     Active Substance: POTASSIUM CHLORIDE
     Indication: Mineral supplementation

REACTIONS (2)
  - Pruritus [Recovering/Resolving]
  - Erythema [Recovering/Resolving]

NARRATIVE: CASE EVENT DATE: 20230519
